FAERS Safety Report 18049480 (Version 1)
Quarter: 2020Q3

REPORT INFORMATION
  Report Type: Spontaneous
  Country: US (occurrence: US)
  Receive Date: 20200721
  Receipt Date: 20200721
  Transmission Date: 20201103
  Serious: No
  Sender: FDA-Public Use
  Company Number: US-SA-2020SA185245

PATIENT

DRUGS (2)
  1. LANTUS SOLOSTAR [Suspect]
     Active Substance: INSULIN GLARGINE
     Dosage: 25?30 UNITS EACH DAY DEPENDING ON HIS BLOOD SUGAR, QD (IN MORNING)
     Route: 065
  2. VICTOZA [Concomitant]
     Active Substance: LIRAGLUTIDE
     Dosage: AT NIGHT
     Route: 065

REACTIONS (5)
  - Weight decreased [Unknown]
  - Product storage error [Unknown]
  - Hyperhidrosis [Unknown]
  - Blood glucose fluctuation [Unknown]
  - Blood glucose decreased [Unknown]

NARRATIVE: CASE EVENT DATE: 20200715
